FAERS Safety Report 4628023-8 (Version None)
Quarter: 2005Q2

REPORT INFORMATION
  Report Type: 
  Country: None (occurrence: None)
  Receive Date: 20050406
  Receipt Date: 20050322
  Transmission Date: 20051028
  Serious: Yes (Hospitalization)
  Sender: FDA-Public Use
  Company Number: BE-BRISTOL-MYERS SQUIBB COMPANY-12907853

PATIENT
  Age: 27 Year
  Sex: Female
  Weight: 110 kg

DRUGS (4)
  1. ATAZANAVIR [Suspect]
     Indication: HIV INFECTION
     Route: 048
  2. AUGMENTIN '125' [Concomitant]
     Route: 042
     Dates: start: 20050320, end: 20050323
  3. AUGMENTIN '125' [Concomitant]
     Route: 048
     Dates: start: 20050324, end: 20050404
  4. ZITHROMAX [Concomitant]
     Route: 048
     Dates: start: 20050324, end: 20050404

REACTIONS (1)
  - PNEUMONIA [None]
